FAERS Safety Report 23307985 (Version 1)
Quarter: 2023Q4

REPORT INFORMATION
  Report Type: Spontaneous
  Country: CA (occurrence: CA)
  Receive Date: 20231218
  Receipt Date: 20231218
  Transmission Date: 20240110
  Serious: Yes (Life-Threatening, Other)
  Sender: FDA-Public Use
  Company Number: CA-FreseniusKabi-FK202320449

PATIENT
  Age: 64 Year
  Sex: Female

DRUGS (3)
  1. HYDROMORPHONE HYDROCHLORIDE [Suspect]
     Active Substance: HYDROMORPHONE HYDROCHLORIDE
     Indication: Pain management
     Dosage: FREQUENCY: ONCE?DOSAGE FORM: SOLUTION INTRAMUSCULAR
     Route: 058
  2. HYDROMORPHONE HYDROCHLORIDE [Suspect]
     Active Substance: HYDROMORPHONE HYDROCHLORIDE
     Dosage: FREQUENCY: ONCE?DOSAGE FORM: SOLUTION INTRAMUSCULAR
     Route: 058
  3. OXYCODONE [Suspect]
     Active Substance: OXYCODONE
     Indication: Pain management
     Dosage: DOSAGE FORM: NOT SPECIFIED?ROA: ORAL?FREQUENCY: ONCE

REACTIONS (6)
  - Depressed level of consciousness [Unknown]
  - Hypoxia [Unknown]
  - Oxygen saturation decreased [Unknown]
  - Oxygen therapy [Unknown]
  - Resuscitation [Unknown]
  - Unresponsive to stimuli [Unknown]
